FAERS Safety Report 13075886 (Version 1)
Quarter: 2016Q4

REPORT INFORMATION
  Report Type: Spontaneous
  Country: US (occurrence: US)
  Receive Date: 20161230
  Receipt Date: 20161230
  Transmission Date: 20170207
  Serious: Yes (Hospitalization, Other)
  Sender: FDA-Public Use
  Company Number: None

PATIENT
  Age: 63 Year
  Sex: Female
  Weight: 182 kg

DRUGS (1)
  1. STIVARGA [Suspect]
     Active Substance: REGORAFENIB
     Indication: COLON CANCER
     Dosage: 2 TABLETS DAILY 3 WEEKS ON, 1 WEEK OFF ORAL
     Route: 048
     Dates: start: 201610, end: 20161210

REACTIONS (3)
  - Dyspnoea [None]
  - Therapy cessation [None]
  - Cardiac failure congestive [None]

NARRATIVE: CASE EVENT DATE: 20161210
